FAERS Safety Report 7394158-2 (Version None)
Quarter: 2011Q2

REPORT INFORMATION
  Report Type: 
  Country: None (occurrence: None)
  Receive Date: 20110405
  Receipt Date: 20101006
  Transmission Date: 20111010
  Serious: Yes (Other)
  Sender: FDA-Public Use
  Company Number: US-BAYER-200943996NA

PATIENT
  Sex: Female
  Weight: 50 kg

DRUGS (12)
  1. PRILOSEC [Concomitant]
  2. YAZ [Suspect]
     Indication: MENSTRUAL CYCLE MANAGEMENT
     Dates: start: 20081101
  3. ADVAIR DISKUS 100/50 [Concomitant]
     Dosage: 1 PUFF(S), BID
  4. MULTI-VITAMIN [Concomitant]
  5. ADVAIR DISKUS 100/50 [Concomitant]
  6. VENTOLIN [Concomitant]
  7. TOPAMAX [Concomitant]
     Indication: CONVULSION
     Dosage: 1 UNK, UNK
  8. LORATADINE [Concomitant]
     Dosage: 10 MG/24HR, UNK
  9. YASMIN [Suspect]
     Dates: start: 20081101
  10. ALBUTEROL [Concomitant]
     Dosage: 1 PUFF(S), PRN
  11. SINGULAIR [Concomitant]
     Dosage: 10 MG/24HR, UNK
  12. ACCOLATE [Concomitant]

REACTIONS (13)
  - MUSCULOSKELETAL CHEST PAIN [None]
  - ABDOMINAL DISTENSION [None]
  - DYSPEPSIA [None]
  - ABDOMINAL PAIN [None]
  - CHOLECYSTITIS CHRONIC [None]
  - FAT INTOLERANCE [None]
  - DECREASED APPETITE [None]
  - EJECTION FRACTION DECREASED [None]
  - NAUSEA [None]
  - ABDOMINAL PAIN UPPER [None]
  - GALLBLADDER DISORDER [None]
  - VOMITING [None]
  - GASTROOESOPHAGEAL REFLUX DISEASE [None]
